FAERS Safety Report 25654458 (Version 4)
Quarter: 2025Q4

REPORT INFORMATION
  Report Type: Spontaneous
  Country: JP (occurrence: JP)
  Receive Date: 20250807
  Receipt Date: 20251107
  Transmission Date: 20260117
  Serious: Yes (Hospitalization, Other)
  Sender: UCB
  Company Number: JP-UCBJ-CD202510271UCBPHAPROD

PATIENT
  Age: 68 Year
  Weight: 51 kg

DRUGS (7)
  1. BIMZELX [Suspect]
     Active Substance: BIMEKIZUMAB-BKZX
     Indication: Psoriasis
     Dosage: 320 MILLIGRAM, EV 8 WEEKS
  2. BIMZELX [Suspect]
     Active Substance: BIMEKIZUMAB-BKZX
     Indication: Psoriatic arthropathy
  3. COIX LACRYMA-JOBI VAR. MA-YUEN SEED [Suspect]
     Active Substance: COIX LACRYMA-JOBI VAR. MA-YUEN SEED
     Indication: Product used for unknown indication
     Dosage: UNK
  4. LEVOTHYROXINE [Concomitant]
     Active Substance: LEVOTHYROXINE
     Indication: Product used for unknown indication
  5. URSODIOL [Concomitant]
     Active Substance: URSODIOL
     Indication: Product used for unknown indication
     Dosage: 200 MILLIGRAM, 4X/DAY (QID)
  6. PANCRELIPASE [Concomitant]
     Active Substance: PANCRELIPASE
     Indication: Product used for unknown indication
     Dosage: 300 MILLIGRAM, 4X/DAY (QID)
  7. PEMAFIBRATE [Concomitant]
     Active Substance: PEMAFIBRATE
     Indication: Product used for unknown indication

REACTIONS (2)
  - Organising pneumonia [Recovering/Resolving]
  - Aphthous ulcer [Recovered/Resolved]
